FAERS Safety Report 10278538 (Version 3)
Quarter: 2015Q1

REPORT INFORMATION
  Report Type: Report from Study
  Country: US (occurrence: US)
  Receive Date: 20140704
  Receipt Date: 20150217
  Transmission Date: 20150720
  Serious: Yes (Hospitalization)
  Sender: FDA-Public Use
  Company Number: US-ABBVIE-14K-163-1245186-00

PATIENT
  Age: 75 Year
  Sex: Female

DRUGS (10)
  1. XANAX [Interacting]
     Active Substance: ALPRAZOLAM
     Indication: ANXIOLYTIC THERAPY
  2. HUMIRA [Suspect]
     Active Substance: ADALIMUMAB
     Indication: CROHN^S DISEASE
     Dates: start: 20140522, end: 20140522
  3. HUMIRA [Suspect]
     Active Substance: ADALIMUMAB
     Dates: start: 20140605, end: 20140605
  4. HUMIRA [Suspect]
     Active Substance: ADALIMUMAB
     Dates: start: 20140722
  5. NEXIUM [Concomitant]
     Active Substance: ESOMEPRAZOLE MAGNESIUM
     Indication: GASTROOESOPHAGEAL REFLUX DISEASE
  6. PREDNISONE. [Concomitant]
     Active Substance: PREDNISONE
     Dates: start: 2014
  7. EVAMIST [Concomitant]
     Active Substance: ESTRADIOL
     Indication: HORMONE REPLACEMENT THERAPY
     Dosage: ON ARM
  8. PREDNISONE. [Concomitant]
     Active Substance: PREDNISONE
     Indication: PRODUCT USED FOR UNKNOWN INDICATION
     Dosage: 1.5 TABLET DAILY
     Dates: start: 2014, end: 2014
  9. PROGESTERONE. [Concomitant]
     Active Substance: PROGESTERONE
     Indication: HORMONE REPLACEMENT THERAPY
  10. XARELTO [Interacting]
     Active Substance: RIVAROXABAN
     Indication: ANTICOAGULANT THERAPY
     Dates: start: 201406

REACTIONS (22)
  - Injection site bruising [Recovering/Resolving]
  - Musculoskeletal pain [Recovering/Resolving]
  - Pulmonary thrombosis [Unknown]
  - Head injury [Recovering/Resolving]
  - Asthenia [Recovering/Resolving]
  - Peripheral swelling [Not Recovered/Not Resolved]
  - Dyspnoea exertional [Recovering/Resolving]
  - Injection site pain [Not Recovered/Not Resolved]
  - Thrombosis [Unknown]
  - Panic attack [Not Recovered/Not Resolved]
  - Abdominal pain upper [Recovering/Resolving]
  - Fall [Recovering/Resolving]
  - Joint swelling [Not Recovered/Not Resolved]
  - Injection site discolouration [Not Recovered/Not Resolved]
  - Pain [Not Recovered/Not Resolved]
  - Insomnia [Not Recovered/Not Resolved]
  - Fear of injection [Recovering/Resolving]
  - Abdominal pain [Not Recovered/Not Resolved]
  - Fractured coccyx [Recovering/Resolving]
  - Depression [Not Recovered/Not Resolved]
  - Upper limb fracture [Recovering/Resolving]
  - Drug interaction [Unknown]

NARRATIVE: CASE EVENT DATE: 2014
